FAERS Safety Report 6016276-3 (Version None)
Quarter: 2008Q4

REPORT INFORMATION
  Report Type: 
  Country: None (occurrence: None)
  Receive Date: 20081222
  Receipt Date: 20081217
  Transmission Date: 20090506
  Serious: Yes (Other)
  Sender: FDA-Public Use
  Company Number: US-AMGEN-US315628

PATIENT
  Sex: Male
  Weight: 82 kg

DRUGS (5)
  1. ARANESP [Suspect]
     Indication: MYELODYSPLASTIC SYNDROME
     Route: 065
     Dates: start: 20070901, end: 20080917
  2. PROCRIT [Suspect]
     Indication: MYELODYSPLASTIC SYNDROME
     Route: 065
     Dates: start: 20070401, end: 20070901
  3. PROPAFENONE HCL [Concomitant]
  4. ALFUZOSIN HCL [Concomitant]
  5. LUMIGAN [Concomitant]

REACTIONS (3)
  - APLASIA PURE RED CELL [None]
  - DISEASE PROGRESSION [None]
  - MYELODYSPLASTIC SYNDROME [None]
